FAERS Safety Report 5822004-4 (Version None)
Quarter: 2008Q3

REPORT INFORMATION
  Report Type: 
  Country: None (occurrence: None)
  Receive Date: 20080724
  Receipt Date: 20080716
  Transmission Date: 20090109
  Serious: Yes (Hospitalization, Other)
  Sender: FDA-Public Use
  Company Number: JP-ALLERGAN-0804188US

PATIENT
  Sex: Male

DRUGS (3)
  1. BOTOX PLACEBO [Suspect]
     Indication: MUSCLE SPASTICITY
     Dates: start: 20071126, end: 20071126
  2. BLINDED BOTULINUM TOXIN TYPE A - GENERAL [Suspect]
     Indication: MUSCLE SPASTICITY
     Dates: start: 20071126, end: 20071126
  3. BOTOX [Suspect]
     Indication: MUSCLE SPASTICITY
     Dates: start: 20080218, end: 20080218

REACTIONS (1)
  - EPILEPSY [None]
